FAERS Safety Report 18019685 (Version 1)
Quarter: 2020Q3

REPORT INFORMATION
  Report Type: Spontaneous
  Country: US (occurrence: US)
  Receive Date: 20200714
  Receipt Date: 20200714
  Transmission Date: 20201103
  Serious: Yes (Hospitalization)
  Sender: FDA-Public Use
  Company Number: None

PATIENT
  Age: 92 Year
  Sex: Male
  Weight: 69 kg

DRUGS (1)
  1. TROSPIUM [Suspect]
     Active Substance: TROSPIUM
     Indication: URINARY INCONTINENCE
     Route: 048
     Dates: start: 20191126, end: 20191202

REACTIONS (5)
  - Urinary tract obstruction [None]
  - Constipation [None]
  - Dizziness [None]
  - Urinary retention [None]
  - Sedation [None]

NARRATIVE: CASE EVENT DATE: 20191202
